FAERS Safety Report 6105205-X (Version None)
Quarter: 2009Q1

REPORT INFORMATION
  Report Type: 
  Country: None (occurrence: None)
  Receive Date: 20090304
  Receipt Date: 20090219
  Transmission Date: 20090719
  Serious: No
  Sender: FDA-Public Use
  Company Number: C-09-0039-W

PATIENT

DRUGS (1)
  1. MIDAZOLAM INJECTION 1MG/ML (WOCKHARDT) [Suspect]

REACTIONS (1)
  - HAEMORRHAGE [None]
